FAERS Safety Report 9639951 (Version 2)
Quarter: 2013Q4

REPORT INFORMATION
  Report Type: Spontaneous
  Country: FR (occurrence: FR)
  Receive Date: 20131023
  Receipt Date: 20131108
  Transmission Date: 20140711
  Serious: Yes (Hospitalization, Other)
  Sender: FDA-Public Use
  Company Number: FR-EISAI INC-E3810-06729-SPO-FR

PATIENT
  Age: 72 Year
  Sex: Male

DRUGS (3)
  1. PARIET (RABEPRAZOLE) [Suspect]
     Indication: GASTRITIS HAEMORRHAGIC
     Route: 048
     Dates: start: 20130810, end: 20130924
  2. SECTRAL [Concomitant]
     Route: 065
  3. KARDEGIC [Concomitant]
     Route: 065

REACTIONS (7)
  - Liver abscess [Unknown]
  - Hyperhidrosis [Recovered/Resolved]
  - Decreased appetite [Recovered/Resolved]
  - Blood gastrin increased [Unknown]
  - Blood chromogranin A increased [Unknown]
  - Chills [Recovered/Resolved]
  - Asthenia [Recovered/Resolved]
